FAERS Safety Report 9299122 (Version 1)
Quarter: 2013Q2

REPORT INFORMATION
  Report Type: Spontaneous
  Country: US (occurrence: US)
  Receive Date: 20130520
  Receipt Date: 20130520
  Transmission Date: 20140414
  Serious: Yes (Hospitalization, Other)
  Sender: FDA-Public Use
  Company Number: US-009507513-1201USA00762

PATIENT
  Sex: Female
  Weight: 68.27 kg

DRUGS (6)
  1. FOSAMAX [Suspect]
     Indication: OSTEOPOROSIS
     Dosage: 70 MG, QW
     Route: 048
     Dates: start: 20021111
  2. ALENDRONATE SODIUM [Suspect]
     Dosage: 70 MG, UNK
  3. CALCIUM (UNSPECIFIED) [Concomitant]
     Dosage: 1200/1500 MG
     Dates: start: 1997
  4. VITAMIN D (UNSPECIFIED) [Concomitant]
     Dosage: UNK
     Dates: start: 1997
  5. CORTICOSTEROIDS (UNSPECIFIED) [Concomitant]
     Dosage: UNK
     Dates: start: 200005, end: 200707
  6. SELECTIVE ESTROGEN RECEPTOR MODULATOR (UNSPECIFIED) [Concomitant]
     Dosage: UNK
     Dates: start: 20021105, end: 200707

REACTIONS (10)
  - Femur fracture [Unknown]
  - Intramedullary rod insertion [Unknown]
  - Blood cholesterol increased [Unknown]
  - Tendon sheath incision [Unknown]
  - Osteopenia [Unknown]
  - Osteoarthritis [Unknown]
  - Osteoarthritis [Unknown]
  - Intervertebral disc degeneration [Unknown]
  - Fibula fracture [Unknown]
  - Pain in extremity [Recovering/Resolving]
